FAERS Safety Report 12854743 (Version 1)
Quarter: 2016Q4

REPORT INFORMATION
  Report Type: Spontaneous
  Country: JP (occurrence: JP)
  Receive Date: 20161017
  Receipt Date: 20161017
  Transmission Date: 20170207
  Serious: Yes (Hospitalization)
  Sender: FDA-Public Use
  Company Number: JP-UCBSA-2016039489

PATIENT
  Age: 12 Year
  Sex: Female
  Weight: 14 kg

DRUGS (16)
  1. EXCEGRAN [Concomitant]
     Active Substance: ZONISAMIDE
     Dosage: 170 MG, ONCE DAILY (QD)
     Route: 053
     Dates: start: 20151215, end: 20160118
  2. PHENOBAL [Concomitant]
     Active Substance: PHENOBARBITAL
     Indication: SIMPLE PARTIAL SEIZURES
     Dosage: 70 MG, ONCE DAILY (QD)
     Route: 053
  3. E KEPPRA [Suspect]
     Active Substance: LEVETIRACETAM
     Dosage: 150 MG, 2X/DAY (BID)
     Route: 053
     Dates: start: 20151112, end: 20151214
  4. E KEPPRA [Suspect]
     Active Substance: LEVETIRACETAM
     Dosage: 250 MG, 2X/DAY (BID)
     Route: 053
     Dates: start: 20160407, end: 20160601
  5. E KEPPRA [Suspect]
     Active Substance: LEVETIRACETAM
     Dosage: 100 MG, 2X/DAY (BID)
     Route: 053
     Dates: start: 20150915, end: 20151111
  6. E KEPPRA [Suspect]
     Active Substance: LEVETIRACETAM
     Dosage: 165 MG, 2X/DAY (BID)
     Route: 053
     Dates: start: 20151215, end: 20160108
  7. E KEPPRA [Suspect]
     Active Substance: LEVETIRACETAM
     Indication: SIMPLE PARTIAL SEIZURES
     Dosage: 70 MG, 2X/DAY (BID)
     Route: 053
     Dates: start: 20150811, end: 20150914
  8. E KEPPRA [Suspect]
     Active Substance: LEVETIRACETAM
     Dosage: 200 MG, 2X/DAY (BID)
     Route: 053
     Dates: start: 20160216, end: 20160406
  9. THYRADIN-S [Concomitant]
     Active Substance: LEVOTHYROXINE
     Indication: PRODUCT USED FOR UNKNOWN INDICATION
     Dosage: 60 ?G, ONCE DAILY (QD)
     Route: 053
  10. E KEPPRA [Suspect]
     Active Substance: LEVETIRACETAM
     Dosage: 300 MG, 2X/DAY (BID)
     Route: 053
     Dates: start: 20160602, end: 20160713
  11. MYSTAN [Concomitant]
     Active Substance: CLOBAZAM
     Indication: SIMPLE PARTIAL SEIZURES
     Dosage: 7 MG, ONCE DAILY (QD)
     Route: 053
  12. E KEPPRA [Suspect]
     Active Substance: LEVETIRACETAM
     Dosage: 175 MG, 2X/DAY (BID)
     Route: 053
     Dates: start: 20160109, end: 20160215
  13. EXCEGRAN [Concomitant]
     Active Substance: ZONISAMIDE
     Dosage: 140 MG, ONCE DAILY (QD)
     Route: 053
     Dates: start: 20160119, end: 20160215
  14. EXCEGRAN [Concomitant]
     Active Substance: ZONISAMIDE
     Dosage: 100 MG, ONCE DAILY (QD)
     Route: 053
     Dates: start: 20160216
  15. E KEPPRA [Suspect]
     Active Substance: LEVETIRACETAM
     Dosage: 75 MG, 2X/DAY (BID)
     Route: 053
     Dates: start: 20160714, end: 20160817
  16. EXCEGRAN [Concomitant]
     Active Substance: ZONISAMIDE
     Indication: SIMPLE PARTIAL SEIZURES
     Dosage: 200 MG, ONCE DAILY (QD)
     Route: 053
     Dates: end: 20151214

REACTIONS (1)
  - Ileus [Unknown]

NARRATIVE: CASE EVENT DATE: 20161003
